FAERS Safety Report 16697164 (Version 1)
Quarter: 2019Q3

REPORT INFORMATION
  Report Type: Spontaneous
  Country: US (occurrence: US)
  Receive Date: 20190813
  Receipt Date: 20190813
  Transmission Date: 20191004
  Serious: No
  Sender: FDA-Public Use
  Company Number: US-PFIZER INC-2019345237

PATIENT
  Age: 32 Year

DRUGS (1)
  1. GABAPENTIN. [Suspect]
     Active Substance: GABAPENTIN
     Dosage: 900 MG, DAILY (ONE CAPSULE IN AM AND 2 CAPSULES AT BEDTIME)

REACTIONS (1)
  - Drug ineffective [Unknown]
